FAERS Safety Report 20590024 (Version 1)
Quarter: 2022Q1

REPORT INFORMATION
  Report Type: Spontaneous
  Country: CN (occurrence: None)
  Receive Date: 20220314
  Receipt Date: 20220314
  Transmission Date: 20220423
  Serious: Yes (Life-Threatening, Hospitalization, Other)
  Sender: FDA-Public Use
  Company Number: 2022A108684

PATIENT
  Age: 29220 Day
  Sex: Female

DRUGS (3)
  1. DAPAGLIFLOZIN [Suspect]
     Active Substance: DAPAGLIFLOZIN
     Indication: Hyperglycaemia
     Route: 048
     Dates: start: 20211028, end: 20220307
  2. INSULIN GLARGINE [Suspect]
     Active Substance: INSULIN GLARGINE
     Indication: Hyperglycaemia
     Dosage: 10.000000 U, EVERY DAY, EVERY NIGHT BEFORE BEDTIME
     Route: 058
     Dates: start: 20211128, end: 20220307
  3. ACARBOSE [Suspect]
     Active Substance: ACARBOSE
     Indication: Hyperglycaemia
     Route: 048
     Dates: start: 20211128, end: 20220307

REACTIONS (1)
  - Hypoglycaemic coma [Recovering/Resolving]

NARRATIVE: CASE EVENT DATE: 20220307
